FAERS Safety Report 9403479 (Version 2)
Quarter: 2013Q3

REPORT INFORMATION
  Report Type: Report from Study
  Country: CA (occurrence: CA)
  Receive Date: 20130716
  Receipt Date: 20130726
  Transmission Date: 20140515
  Serious: Yes (Hospitalization)
  Sender: FDA-Public Use
  Company Number: CA-BAXTER-2013BAX026900

PATIENT
  Age: 62 Year
  Sex: Female

DRUGS (16)
  1. PROCYTOX (CYCLOPHOSPHAMIDE) 500MG/VIAL [Suspect]
     Indication: BREAST CANCER
     Route: 042
     Dates: start: 20130529
  2. PROCYTOX (CYCLOPHOSPHAMIDE) 500MG/VIAL [Suspect]
     Route: 042
     Dates: start: 20130619
  3. FLUOROURACIL [Suspect]
     Indication: BREAST CANCER
     Route: 042
     Dates: start: 20130529
  4. FLUOROURACIL [Suspect]
     Route: 042
     Dates: start: 20130619
  5. PHARMORUBICIN [Suspect]
     Indication: BREAST CANCER
     Route: 042
     Dates: start: 20130529
  6. PHARMORUBICIN [Suspect]
     Route: 042
     Dates: start: 20130619
  7. ACETYLSALICYLIC ACID [Concomitant]
     Indication: PRODUCT USED FOR UNKNOWN INDICATION
     Route: 065
     Dates: start: 20090506
  8. LORAZEPAM [Concomitant]
     Indication: PRODUCT USED FOR UNKNOWN INDICATION
     Route: 065
     Dates: start: 20130326
  9. LORAZEPAM [Concomitant]
     Route: 065
     Dates: start: 20120625
  10. CALCITE D [Concomitant]
     Indication: PRODUCT USED FOR UNKNOWN INDICATION
     Route: 065
     Dates: start: 20090506
  11. ONDANSETRON [Concomitant]
     Indication: PRODUCT USED FOR UNKNOWN INDICATION
     Route: 065
     Dates: start: 20130529
  12. PERINDOPRIL [Concomitant]
     Indication: PRODUCT USED FOR UNKNOWN INDICATION
     Route: 065
     Dates: start: 20130103
  13. PANTOPRAZOLE [Concomitant]
     Indication: PRODUCT USED FOR UNKNOWN INDICATION
     Route: 065
     Dates: start: 20130529
  14. PANTOPRAZOLE [Concomitant]
     Route: 065
     Dates: start: 20130625
  15. FLOVENT [Concomitant]
     Indication: PRODUCT USED FOR UNKNOWN INDICATION
     Route: 065
     Dates: start: 20130611
  16. ACETAMINOPHEN [Concomitant]
     Indication: PRODUCT USED FOR UNKNOWN INDICATION
     Route: 065

REACTIONS (2)
  - Pneumonia [Recovered/Resolved]
  - Neutropenia [Recovered/Resolved]
